FAERS Safety Report 8469749-8 (Version None)
Quarter: 2012Q2

REPORT INFORMATION
  Report Type: 
  Country: None (occurrence: None)
  Receive Date: 20120626
  Receipt Date: 20120614
  Transmission Date: 20120825
  Serious: Yes (Hospitalization)
  Sender: FDA-Public Use
  Company Number: DE-TEVA-344367GER

PATIENT
  Sex: Female
  Weight: 77 kg

DRUGS (9)
  1. BEVACIZUMAB [Suspect]
     Indication: BREAST CANCER
     Route: 042
     Dates: start: 20120510, end: 20120510
  2. PACLITAXEL [Suspect]
     Indication: BREAST CANCER
     Route: 042
     Dates: start: 20120419, end: 20120601
  3. FENISTIL [Concomitant]
     Dates: start: 20120419
  4. RANITIDINE [Concomitant]
     Dates: start: 20120419
  5. CARBOPLATIN [Suspect]
     Indication: BREAST CANCER
     Dosage: 176 AUC2 WEEKLY
     Route: 042
     Dates: start: 20120601, end: 20120601
  6. BISOPROLOL FUMARATE [Concomitant]
     Dosage: 5 MILLIGRAM;
     Dates: start: 20090101
  7. GRANISETRON HYDROCHLORIDE [Concomitant]
     Dosage: 1 MILLIGRAM;
     Dates: start: 20120419
  8. DEXAMETHASONE [Concomitant]
     Dates: start: 20120419
  9. DOXORUBICIN HCL [Suspect]
     Indication: BREAST CANCER
     Route: 042
     Dates: start: 20120419, end: 20120601

REACTIONS (1)
  - ABSCESS JAW [None]
